FAERS Safety Report 17025034 (Version 6)
Quarter: 2020Q4

REPORT INFORMATION
  Report Type: Spontaneous
  Country: US (occurrence: US)
  Receive Date: 20191113
  Receipt Date: 20201229
  Transmission Date: 20210113
  Serious: Yes (Life-Threatening, Hospitalization, Other)
  Sender: FDA-Public Use
  Company Number: US-VALIDUS PHARMACEUTICALS LLC-US-2019VAL000687

PATIENT
  Age: 29 Year
  Sex: Female

DRUGS (2)
  1. FUROSEMIDE. [Suspect]
     Active Substance: FUROSEMIDE
     Indication: PERIPHERAL SWELLING
     Dosage: UNK
     Route: 065
  2. MULTIVITAMIN                       /07504101/ [Concomitant]
     Active Substance: VITAMINS
     Indication: PRODUCT USED FOR UNKNOWN INDICATION
     Dosage: UNK

REACTIONS (20)
  - Haemoglobin decreased [Recovered/Resolved]
  - Drug reaction with eosinophilia and systemic symptoms [Recovered/Resolved]
  - Rash [Recovered/Resolved]
  - Vitamin D decreased [Recovered/Resolved]
  - Blister [Recovered/Resolved]
  - Oedema peripheral [Recovered/Resolved]
  - Epidermal necrosis [Recovered/Resolved]
  - Erythema [Recovered/Resolved]
  - Scab [Recovered/Resolved]
  - Autoimmune haemolytic anaemia [Recovered/Resolved]
  - Reticulocyte count increased [Recovered/Resolved]
  - Haptoglobin decreased [Recovered/Resolved]
  - International normalised ratio increased [Recovered/Resolved]
  - Anaemia macrocytic [Recovered/Resolved]
  - Blood lactate dehydrogenase increased [Recovered/Resolved]
  - Hepatic function abnormal [Recovered/Resolved]
  - Type IV hypersensitivity reaction [Recovered/Resolved]
  - Eosinophil count increased [Recovered/Resolved]
  - Hepatic enzyme increased [Recovered/Resolved]
  - Eczema [Recovered/Resolved]
